FAERS Safety Report 8179385-9 (Version None)
Quarter: 2012Q1

REPORT INFORMATION
  Report Type: 
  Country: None (occurrence: None)
  Receive Date: 20120302
  Receipt Date: 20120222
  Transmission Date: 20120608
  Serious: Yes (Other)
  Sender: FDA-Public Use
  Company Number: US-JNJFOC-20120212588

PATIENT
  Age: 32 Year
  Sex: Female

DRUGS (5)
  1. LURASIDONE HYDROCHLORIDE [Concomitant]
     Route: 048
     Dates: start: 20120101
  2. COGENTIN [Concomitant]
     Route: 048
  3. KLONOPIN [Concomitant]
     Route: 048
  4. INVEGA SUSTENNA [Suspect]
     Route: 030
     Dates: end: 20120101
  5. INVEGA SUSTENNA [Suspect]
     Indication: PRODUCT USED FOR UNKNOWN INDICATION
     Route: 030

REACTIONS (2)
  - TARDIVE DYSKINESIA [None]
  - EYE SWELLING [None]
